FAERS Safety Report 6977148-0 (Version None)
Quarter: 2010Q3

REPORT INFORMATION
  Report Type: 
  Country: None (occurrence: None)
  Receive Date: 20100910
  Receipt Date: 20100902
  Transmission Date: 20110219
  Serious: Yes (Other)
  Sender: FDA-Public Use
  Company Number: IL-WATSON-2010-12067

PATIENT

DRUGS (1)
  1. FUROSEMIDE (WATSON LABORATORIES) [Suspect]
     Indication: CARDIO-RESPIRATORY DISTRESS
     Dosage: OVER 2 MG/KG/D

REACTIONS (1)
  - NEPHROCALCINOSIS [None]
